FAERS Safety Report 5906702-X (Version None)
Quarter: 2008Q3

REPORT INFORMATION
  Report Type: 
  Country: None (occurrence: None)
  Receive Date: 20080930
  Receipt Date: 20080922
  Transmission Date: 20090109
  Serious: Yes (Hospitalization)
  Sender: FDA-Public Use
  Company Number: 98155

PATIENT
  Age: 82 Year
  Sex: Female

DRUGS (4)
  1. ACETAMINOPHEN [Suspect]
     Indication: PAIN
     Dosage: 1G/ QID/ ORAL
     Route: 048
  2. FLOXACILLIN SODIUM [Suspect]
     Indication: DEVICE RELATED INFECTION
     Dosage: IV
     Route: 042
  3. RIFAMPICIN [Concomitant]
  4. LEVOFLOXACIN [Concomitant]

REACTIONS (13)
  - ATAXIA [None]
  - CONFUSIONAL STATE [None]
  - CULTURE POSITIVE [None]
  - DEPRESSED LEVEL OF CONSCIOUSNESS [None]
  - MALAISE [None]
  - METABOLIC ACIDOSIS [None]
  - METABOLIC ENCEPHALOPATHY [None]
  - NAUSEA [None]
  - PSEUDOMONAS INFECTION [None]
  - PYROGLUTAMATE INCREASED [None]
  - STAPHYLOCOCCAL INFECTION [None]
  - URINE ANALYSIS ABNORMAL [None]
  - URINE KETONE BODY PRESENT [None]
